FAERS Safety Report 9256925 (Version 1)
Quarter: 2013Q2

REPORT INFORMATION
  Report Type: Spontaneous
  Country: US (occurrence: None)
  Receive Date: 20130423
  Receipt Date: 20130423
  Transmission Date: 20140414
  Serious: Yes (Hospitalization)
  Sender: FDA-Public Use
  Company Number: B0885830A

PATIENT
  Age: 64 Year
  Sex: Female

DRUGS (16)
  1. CARVEDILOL [Suspect]
     Indication: PRODUCT USED FOR UNKNOWN INDICATION
     Route: 048
  2. CYANOCOBALAMIN [Concomitant]
  3. METOPROLOL TARTRATE [Concomitant]
  4. TRIAMTEREN + HCTZ [Concomitant]
  5. CALCIUM SALT (CALCIUM) (CALCIUM) [Concomitant]
  6. COLECALCIFEROL [Concomitant]
  7. NIFEDIPINE [Concomitant]
  8. FRUSEMDE [Concomitant]
  9. FERROUS GLUCONATE [Concomitant]
  10. FONDAPARINUX SODIUM [Concomitant]
  11. PANTOPRAZOLE [Concomitant]
  12. DOCUSATE NA + SENNOSIDES [Concomitant]
  13. DALTEPARIN SODIUM [Concomitant]
  14. WARFARIN SODIUM [Concomitant]
  15. FERROUS SODIUM [Concomitant]
  16. DOCUSATE SODIUM [Concomitant]

REACTIONS (5)
  - Thrombocytopenia [None]
  - Blood creatinine increased [None]
  - Platelet morphology abnormal [None]
  - Prothrombin time prolonged [None]
  - Hypertension [None]
